FAERS Safety Report 5550593-6 (Version None)
Quarter: 2007Q4

REPORT INFORMATION
  Report Type: 
  Country: None (occurrence: None)
  Receive Date: 20071212
  Receipt Date: 20070506
  Transmission Date: 20080405
  Serious: No
  Sender: FDA-Public Use
  Company Number: US-AMGEN-KDL211646

PATIENT
  Sex: Female

DRUGS (1)
  1. ENBREL [Suspect]
     Indication: RHEUMATOID ARTHRITIS
     Route: 058
     Dates: start: 20060601

REACTIONS (13)
  - ABDOMINAL PAIN UPPER [None]
  - DEPRESSED MOOD [None]
  - DIARRHOEA [None]
  - HEADACHE [None]
  - HERPES VIRUS INFECTION [None]
  - MOUTH ULCERATION [None]
  - NAUSEA [None]
  - PYREXIA [None]
  - RHEUMATOID ARTHRITIS [None]
  - STOMACH DISCOMFORT [None]
  - VAGINAL ULCERATION [None]
  - VIRAL INFECTION [None]
  - VOMITING [None]
